FAERS Safety Report 7371028-7 (Version None)
Quarter: 2011Q1

REPORT INFORMATION
  Report Type: 
  Country: None (occurrence: None)
  Receive Date: 20110321
  Receipt Date: 20110321
  Transmission Date: 20110831
  Serious: Yes (Life-Threatening, Other)
  Sender: FDA-Public Use
  Company Number: None

PATIENT
  Age: 54 Year
  Sex: Female
  Weight: 79.3795 kg

DRUGS (1)
  1. KETEK [Suspect]
     Indication: SINUSITIS
     Dosage: TAKE 2 ON DAY ONE, AND 1 PILL FOR 4-5 DA PO
     Route: 048
     Dates: start: 20041008, end: 20051008

REACTIONS (9)
  - NAUSEA [None]
  - DIZZINESS [None]
  - DIARRHOEA [None]
  - GAIT DISTURBANCE [None]
  - HYPERHIDROSIS [None]
  - TOXICITY TO VARIOUS AGENTS [None]
  - ABDOMINAL PAIN [None]
  - CHILLS [None]
  - RETCHING [None]
